FAERS Safety Report 13543937 (Version 1)
Quarter: 2017Q2

REPORT INFORMATION
  Report Type: Spontaneous
  Country: US (occurrence: US)
  Receive Date: 20170515
  Receipt Date: 20170515
  Transmission Date: 20170830
  Serious: No
  Sender: FDA-Public Use
  Company Number: US-TEVA-689470USA

PATIENT
  Sex: Female

DRUGS (2)
  1. CEFALEXIN [Suspect]
     Active Substance: CEPHALEXIN
     Route: 048
     Dates: end: 201608
  2. CEFALEXIN [Suspect]
     Active Substance: CEPHALEXIN
     Route: 048
     Dates: end: 201608

REACTIONS (1)
  - Pruritus generalised [Unknown]
